FAERS Safety Report 8505048-3 (Version None)
Quarter: 2012Q2

REPORT INFORMATION
  Report Type: 
  Country: None (occurrence: None)
  Receive Date: 20120629
  Receipt Date: 20120614
  Transmission Date: 20120825
  Serious: Yes (Hospitalization, Other)
  Sender: FDA-Public Use
  Company Number: 2012AM006298

PATIENT
  Age: 40 Year
  Sex: Female
  Weight: 76.2043 kg

DRUGS (9)
  1. HUMALOG [Concomitant]
  2. REGLAN [Concomitant]
  3. SYMLIN [Suspect]
     Indication: TYPE 1 DIABETES MELLITUS
     Dosage: 120 MCG;SC
     Route: 058
  4. NOVOLOG [Concomitant]
  5. SYMLIN [Suspect]
     Indication: TYPE 1 DIABETES MELLITUS
     Dosage: 120 MCG;SC 60 MCG;SC 60 MCG;BIDSC 30 MCG;BID;SC
     Route: 058
     Dates: end: 20110901
  6. SYMLIN [Suspect]
     Indication: TYPE 1 DIABETES MELLITUS
     Dosage: 120 MCG;SC 60 MCG;SC 60 MCG;BIDSC 30 MCG;BID;SC
     Route: 058
     Dates: start: 20120601
  7. SYMLIN [Suspect]
     Indication: TYPE 1 DIABETES MELLITUS
     Dosage: 120 MCG;SC 60 MCG;SC 60 MCG;BIDSC 30 MCG;BID;SC
     Route: 058
     Dates: start: 20120608
  8. SYMLIN [Suspect]
     Indication: TYPE 1 DIABETES MELLITUS
     Dosage: 120 MCG;SC 60 MCG;SC 60 MCG;BIDSC 30 MCG;BID;SC
     Route: 058
     Dates: start: 20111201, end: 20120201
  9. SYMLIN [Suspect]
     Indication: TYPE 1 DIABETES MELLITUS
     Dosage: 120 MCG;SC 60 MCG;SC 60 MCG;BIDSC 30 MCG;BID;SC
     Route: 058

REACTIONS (8)
  - CONVULSION [None]
  - OVERDOSE [None]
  - GLYCOSYLATED HAEMOGLOBIN INCREASED [None]
  - BLOOD GLUCOSE DECREASED [None]
  - WEIGHT INCREASED [None]
  - NAUSEA [None]
  - BLOOD GLUCOSE INCREASED [None]
  - DRUG EFFECT DECREASED [None]
